FAERS Safety Report 7915051-X (Version None)
Quarter: 2011Q4

REPORT INFORMATION
  Report Type: 
  Country: None (occurrence: None)
  Receive Date: 20111115
  Receipt Date: 20111108
  Transmission Date: 20120403
  Serious: Yes (Hospitalization)
  Sender: FDA-Public Use
  Company Number: US-BRISTOL-MYERS SQUIBB COMPANY-16219719

PATIENT
  Age: 27 Year
  Sex: Male
  Weight: 64 kg

DRUGS (7)
  1. ABILIFY [Suspect]
     Indication: MAJOR DEPRESSION
     Dosage: CONTINUED IN 2006; STOPPED AND RESTARTED ON 07OCT2011(10-15MG) ALSO TAKEN 30MG
     Route: 048
  2. LEXAPRO [Suspect]
     Indication: DEPRESSION
     Dosage: DURATION:7YEARS AGO
  3. ABILIFY [Suspect]
     Indication: DEPRESSION
     Dosage: CONTINUED IN 2006; STOPPED AND RESTARTED ON 07OCT2011(10-15MG) ALSO TAKEN 30MG
     Route: 048
  4. LEXAPRO [Suspect]
     Indication: MAJOR DEPRESSION
     Dosage: DURATION:7YEARS AGO
  5. GABITRIL [Suspect]
     Indication: CONVULSION
     Dates: start: 20060101
  6. IBUPROFEN [Concomitant]
     Indication: PAIN
     Dates: start: 20060101
  7. GABITRIL [Suspect]
     Indication: MOOD SWINGS
     Dates: start: 20060101

REACTIONS (6)
  - LOGORRHOEA [None]
  - POLLAKIURIA [None]
  - LOSS OF CONSCIOUSNESS [None]
  - HEAD INJURY [None]
  - PSYCHOMOTOR HYPERACTIVITY [None]
  - INCREASED APPETITE [None]
